FAERS Safety Report 15611342 (Version 1)
Quarter: 2018Q4

REPORT INFORMATION
  Report Type: Spontaneous
  Country: AR (occurrence: AR)
  Receive Date: 20181113
  Receipt Date: 20181113
  Transmission Date: 20190205
  Serious: Yes (Hospitalization, Other)
  Sender: FDA-Public Use
  Company Number: AR-APOTEX-2018AP024587

PATIENT
  Age: 45 Year
  Sex: Female

DRUGS (1)
  1. TOPIRAMATE. [Suspect]
     Active Substance: TOPIRAMATE
     Indication: MIGRAINE
     Route: 065

REACTIONS (4)
  - Ocular hypertension [Recovered/Resolved]
  - Angle closure glaucoma [Recovered/Resolved]
  - Acute myopia [Recovered/Resolved]
  - Maculopathy [Recovered/Resolved]
